FAERS Safety Report 5548732-6 (Version None)
Quarter: 2007Q4

REPORT INFORMATION
  Report Type: 
  Country: None (occurrence: None)
  Receive Date: 20071211
  Receipt Date: 20070410
  Transmission Date: 20080405
  Serious: No
  Sender: FDA-Public Use
  Company Number: US-AMGEN-KDL217523

PATIENT
  Sex: Female
  Weight: 94.4 kg

DRUGS (8)
  1. ENBREL [Suspect]
     Indication: RHEUMATOID ARTHRITIS
     Route: 058
     Dates: start: 20051117
  2. METHOTREXATE [Concomitant]
     Dates: start: 20020101
  3. PREDNISONE [Concomitant]
  4. NAPROXEN [Concomitant]
  5. ACCUPRIL [Concomitant]
  6. HYDROCHLOROTHIAZIDE [Concomitant]
  7. PREMARIN [Concomitant]
  8. FOLIC ACID [Concomitant]

REACTIONS (3)
  - BRONCHITIS [None]
  - NASOPHARYNGITIS [None]
  - RHEUMATOID ARTHRITIS [None]
